FAERS Safety Report 5982107-0 (Version None)
Quarter: 2008Q4

REPORT INFORMATION
  Report Type: 
  Country: None (occurrence: None)
  Receive Date: 20081202
  Receipt Date: 20081117
  Transmission Date: 20090506
  Serious: Yes (Death)
  Sender: FDA-Public Use
  Company Number: 2008US003144

PATIENT
  Age: 71 Year
  Sex: Male

DRUGS (2)
  1. AMBISOME [Suspect]
     Indication: FUNGAL INFECTION
     Dosage: 5 MG/KG UID/QD
  2. MEROPENEM (MEROPENEM TRIHYDRATE) [Suspect]

REACTIONS (9)
  - CAVERNOUS SINUS THROMBOSIS [None]
  - CELLULITIS [None]
  - DRUG INEFFECTIVE [None]
  - FACIAL PALSY [None]
  - IVTH NERVE PARALYSIS [None]
  - MALIGNANT NEOPLASM PROGRESSION [None]
  - METASTASES TO PERIPHERAL VASCULAR SYSTEM [None]
  - NECROSIS [None]
  - PULMONARY CAVITATION [None]
